FAERS Safety Report 8832881 (Version 1)
Quarter: 2012Q4

REPORT INFORMATION
  Report Type: Spontaneous
  Country: US (occurrence: None)
  Receive Date: 20121009
  Receipt Date: 20121009
  Transmission Date: 20130627
  Serious: Yes (Disabling)
  Sender: FDA-Public Use
  Company Number: None

PATIENT
  Age: 34 Year
  Sex: Female
  Weight: 97.98 kg

DRUGS (1)
  1. DEPAKOTE ER [Suspect]
     Indication: BIPOLAR I DISORDER
     Dates: start: 20100401, end: 20121008

REACTIONS (7)
  - Convulsion [None]
  - Pyrexia [None]
  - Chromaturia [None]
  - Hypothyroidism [None]
  - Musculoskeletal stiffness [None]
  - Arthralgia [None]
  - Muscle disorder [None]
